FAERS Safety Report 7180143-2 (Version None)
Quarter: 2010Q4

REPORT INFORMATION
  Report Type: 
  Country: None (occurrence: None)
  Receive Date: 20101221
  Receipt Date: 20101208
  Transmission Date: 20110411
  Serious: Yes (Hospitalization, Other)
  Sender: FDA-Public Use
  Company Number: US-CELGENEUS-163-21880-10102595

PATIENT
  Sex: Male
  Weight: 65.83 kg

DRUGS (20)
  1. REVLIMID [Suspect]
     Indication: MULTIPLE MYELOMA
     Route: 048
     Dates: start: 20100801, end: 20100930
  2. OXYGEN [Concomitant]
     Route: 055
     Dates: start: 20100901
  3. AMLODIPINE [Concomitant]
     Route: 048
  4. ASPIRIN [Concomitant]
     Route: 048
  5. DOCUSATE [Concomitant]
     Route: 048
  6. FLUOXETINE [Concomitant]
     Indication: DEPRESSION
     Route: 048
     Dates: start: 20061001
  7. FUROSEMIDE [Concomitant]
     Route: 065
  8. HYDROCHLOROTHIAZIDE [Concomitant]
     Route: 048
  9. HYDROCODONE BITARTRATE + ACETAMINOPHEN [Concomitant]
     Dosage: 10/500MG
     Route: 048
  10. LISINOPRIL [Concomitant]
     Route: 048
  11. LORAZEPAM [Concomitant]
     Route: 048
  12. MULTI-VITAMINS [Concomitant]
     Route: 048
  13. NITROFURANTOIN [Concomitant]
     Route: 048
  14. OMEPRAZOLE [Concomitant]
     Route: 048
  15. POTASSIUM CHLORIDE [Concomitant]
     Route: 048
  16. PRIMIDONE [Concomitant]
     Route: 048
  17. PROPRANOLOL [Concomitant]
     Route: 048
  18. QUETIAPINE [Concomitant]
     Indication: SLEEP DISORDER
     Route: 048
     Dates: start: 20101014
  19. TAMSULOSIN [Concomitant]
     Indication: URINARY RETENTION
     Route: 048
     Dates: start: 20061011
  20. PAMIDRONATE DISODIUM [Concomitant]
     Route: 051
     Dates: start: 20101103

REACTIONS (11)
  - ASTHENIA [None]
  - CARDIAC FAILURE CONGESTIVE [None]
  - CONFUSIONAL STATE [None]
  - DRUG INTOLERANCE [None]
  - FALL [None]
  - FATIGUE [None]
  - NOCTURIA [None]
  - PARAESTHESIA [None]
  - RIB FRACTURE [None]
  - SPINAL FRACTURE [None]
  - URINARY TRACT OBSTRUCTION [None]
